FAERS Safety Report 15902892 (Version 2)
Quarter: 2019Q2

REPORT INFORMATION
  Report Type: Spontaneous
  Country: HU (occurrence: HU)
  Receive Date: 20190202
  Receipt Date: 20190401
  Transmission Date: 20190711
  Serious: Yes (Hospitalization, Other)
  Sender: FDA-Public Use
  Company Number: HU-ACCORD-104285

PATIENT
  Age: 69 Year
  Sex: Female

DRUGS (3)
  1. CARBOPLATIN. [Suspect]
     Active Substance: CARBOPLATIN
     Indication: BREAST CANCER METASTATIC
     Dosage: 25% REDUCTION IN DOSE
     Route: 065
  2. PACLITAXEL/PACLITAXEL LIPOSOME [Suspect]
     Active Substance: PACLITAXEL
     Indication: BREAST CANCER
  3. DOCETAXEL. [Suspect]
     Active Substance: DOCETAXEL
     Indication: BREAST CANCER METASTATIC
     Dosage: 25% REDUCTION IN DOSE?75 MG/M2, CYCLIC (4 CYCLES, 1ST LINE)
     Route: 042

REACTIONS (7)
  - Asthenia [Unknown]
  - Gait disturbance [Unknown]
  - Orthostatic hypotension [Recovered/Resolved]
  - Off label use [Unknown]
  - Fall [Unknown]
  - Neuropathy peripheral [Recovered/Resolved]
  - Autonomic neuropathy [Recovered/Resolved]
